FAERS Safety Report 15320413 (Version 1)
Quarter: 2018Q3

REPORT INFORMATION
  Report Type: Report from Study
  Country: None (occurrence: US)
  Receive Date: 20180827
  Receipt Date: 20180827
  Transmission Date: 20181010
  Serious: Yes (Hospitalization)
  Sender: FDA-Public Use
  Company Number: US-ABBVIE-18K-163-2259366-00

PATIENT
  Age: 58 Year
  Sex: Male

DRUGS (2)
  1. PREDNISONE. [Concomitant]
     Active Substance: PREDNISONE
     Indication: PRODUCT USED FOR UNKNOWN INDICATION
  2. HUMIRA [Suspect]
     Active Substance: ADALIMUMAB
     Indication: COLITIS ULCERATIVE
     Route: 058

REACTIONS (7)
  - Rectal haemorrhage [Unknown]
  - Diplopia [Unknown]
  - Cerebrovascular accident [Unknown]
  - Alpha-1 anti-trypsin deficiency [Unknown]
  - Asthma [Not Recovered/Not Resolved]
  - Influenza [Unknown]
  - Pneumonia [Unknown]

NARRATIVE: CASE EVENT DATE: 2018
